FAERS Safety Report 9543856 (Version 4)
Quarter: 2014Q3

REPORT INFORMATION
  Report Type: Report from Study
  Country: ES (occurrence: ES)
  Receive Date: 20130923
  Receipt Date: 20140805
  Transmission Date: 20150326
  Serious: Yes (Life-Threatening, Hospitalization, Disabling)
  Sender: FDA-Public Use
  Company Number: ES-GLAXOSMITHKLINE-B0783566C

PATIENT
  Age: 76 Year
  Sex: Male
  Weight: 72 kg

DRUGS (41)
  1. INSULIN RAPID [Concomitant]
     Active Substance: INSULIN NOS
     Indication: DIABETES MELLITUS
     Route: 058
     Dates: start: 20120212, end: 20120216
  2. PARACETAMOL [Concomitant]
     Active Substance: ACETAMINOPHEN
     Dosage: 72000MG CUMULATIVE DOSE
     Route: 048
     Dates: start: 20120215, end: 20120309
  3. METILPREDNISOLONA [Concomitant]
     Indication: PNEUMONIA
     Route: 042
     Dates: start: 20120212, end: 20120213
  4. IPRATROPIUM BROMIDE. [Concomitant]
     Active Substance: IPRATROPIUM BROMIDE
     Indication: BRONCHOSPASM
     Route: 055
     Dates: start: 20120213, end: 20120213
  5. IPRATROPIUM BROMIDE. [Concomitant]
     Active Substance: IPRATROPIUM BROMIDE
     Route: 055
     Dates: start: 20120214, end: 20120220
  6. SALBUTAMOL [Concomitant]
     Active Substance: ALBUTEROL
     Indication: CHRONIC OBSTRUCTIVE PULMONARY DISEASE
     Dosage: 180MG CUMULATIVE DOSE
     Route: 055
     Dates: start: 20120212, end: 20120212
  7. PANTOPRAZOLE [Concomitant]
     Active Substance: PANTOPRAZOLE SODIUM
     Indication: PROPHYLAXIS AGAINST GASTROINTESTINAL ULCER
     Dosage: 40MG PER DAY
     Route: 042
     Dates: start: 20120212, end: 20120215
  8. PREDNISONE. [Concomitant]
     Active Substance: PREDNISONE
     Dosage: 10MG PER DAY
     Route: 048
     Dates: start: 20120223, end: 20120225
  9. AMIODARONA [Concomitant]
     Active Substance: AMIODARONE
     Indication: TACHYARRHYTHMIA
     Route: 042
     Dates: start: 20120212, end: 20120212
  10. ATROVENT [Concomitant]
     Active Substance: IPRATROPIUM BROMIDE
     Indication: BRONCHOSPASM
     Route: 055
     Dates: start: 20120213, end: 20120219
  11. FENTANEST [Concomitant]
     Active Substance: FENTANYL CITRATE
     Indication: SEDATION
  12. FUROSEMIDA [Concomitant]
     Active Substance: FUROSEMIDE
     Indication: DIURETIC THERAPY
     Dosage: 60MG CUMULATIVE DOSE
     Route: 042
     Dates: start: 20120212, end: 20120212
  13. PARACETAMOL [Concomitant]
     Active Substance: ACETAMINOPHEN
     Indication: PAIN
     Dosage: 72000MG CUMULATIVE DOSE
     Route: 042
     Dates: start: 20120213, end: 20120213
  14. PARACETAMOL [Concomitant]
     Active Substance: ACETAMINOPHEN
     Dosage: 72000MG CUMULATIVE DOSE
     Route: 042
     Dates: start: 20120213, end: 20120215
  15. SALINE [Concomitant]
     Active Substance: SODIUM CHLORIDE
     Indication: DEHYDRATION
     Dosage: 500ML PER DAY
     Route: 042
     Dates: start: 20120213, end: 20120215
  16. CEFTRIAXONE. [Concomitant]
     Active Substance: CEFTRIAXONE
     Indication: INFECTION
     Dosage: 2000MG PER DAY
     Route: 042
     Dates: start: 20120213, end: 20120214
  17. POTASSIUM CHLORIDE. [Concomitant]
     Active Substance: POTASSIUM CHLORIDE
     Indication: BLOOD POTASSIUM DECREASED
     Dosage: 40MEQ PER DAY
     Route: 042
     Dates: start: 20120213, end: 20120215
  18. LEVOFLOXACIN [Concomitant]
     Active Substance: LEVOFLOXACIN
     Indication: INFECTION
     Dosage: 500MG PER DAY
     Route: 042
     Dates: start: 20120213, end: 20120215
  19. PREDNISONE. [Concomitant]
     Active Substance: PREDNISONE
     Indication: ANTIINFLAMMATORY THERAPY
     Dosage: 30MG PER DAY
     Route: 048
     Dates: start: 20120217, end: 20120219
  20. ADRENALINA [Concomitant]
     Indication: ARRHYTHMIA
     Dosage: 150MG PER DAY
     Route: 042
     Dates: start: 20120212, end: 20120212
  21. OSELTAMIVIR [Concomitant]
     Active Substance: OSELTAMIVIR
     Indication: PNEUMONIA
     Dates: start: 20120212, end: 20120213
  22. LEVOFLOXACIN [Concomitant]
     Active Substance: LEVOFLOXACIN
     Indication: INFECTION
     Dosage: 500MG PER DAY
     Route: 048
     Dates: start: 20120215, end: 20120223
  23. PREDNISONE. [Concomitant]
     Active Substance: PREDNISONE
     Dosage: 20MG PER DAY
     Route: 048
     Dates: start: 20120220, end: 20120222
  24. METILPREDNISOLONA [Concomitant]
     Indication: ANTIINFLAMMATORY THERAPY
     Route: 042
     Dates: start: 20130213, end: 20130214
  25. ATROVENT [Concomitant]
     Active Substance: IPRATROPIUM BROMIDE
     Indication: CHRONIC OBSTRUCTIVE PULMONARY DISEASE
     Route: 055
     Dates: start: 20120212, end: 20120213
  26. FENTANEST [Concomitant]
     Active Substance: FENTANYL CITRATE
     Indication: ANALGESIC THERAPY
     Route: 042
     Dates: start: 20120212, end: 20120212
  27. KETAMINE [Concomitant]
     Active Substance: KETAMINE
     Indication: ANAESTHETIC PREMEDICATION
     Route: 042
     Dates: start: 20120212, end: 20120212
  28. CEFTRIAXONA [Concomitant]
     Active Substance: CEFTRIAXONE
     Indication: PNEUMONIA
     Dosage: 1G PER DAY
     Route: 042
     Dates: start: 20120212, end: 20120212
  29. PANTOPRAZOLE [Concomitant]
     Active Substance: PANTOPRAZOLE SODIUM
     Dosage: 40MG PER DAY
     Dates: start: 20120215, end: 20120309
  30. LOBIVON [Concomitant]
     Active Substance: NEBIVOLOL HYDROCHLORIDE
     Indication: HYPERTENSION
     Dosage: 2.5MG PER DAY
     Route: 048
     Dates: start: 2008, end: 20120412
  31. DEXTROSE. [Concomitant]
     Active Substance: DEXTROSE
     Indication: DEHYDRATION
     Route: 042
     Dates: start: 20120213, end: 20120215
  32. FLUTICASONE FUROATE + VILANTEROL TRIFENATATE [Suspect]
     Active Substance: FLUTICASONE FUROATE\VILANTEROL TRIFENATATE
     Indication: CHRONIC OBSTRUCTIVE PULMONARY DISEASE
     Dates: start: 20120216, end: 20120308
  33. ENOXAPARIN SODIUM. [Concomitant]
     Active Substance: ENOXAPARIN SODIUM
     Indication: THROMBOSIS PROPHYLAXIS
     Dosage: 40MG PER DAY
     Route: 058
     Dates: start: 20120212, end: 20120221
  34. FUROSEMIDE. [Concomitant]
     Active Substance: FUROSEMIDE
     Indication: DIURETIC THERAPY
     Route: 042
     Dates: start: 20120213, end: 20120214
  35. ATROVENT [Concomitant]
     Active Substance: IPRATROPIUM BROMIDE
     Route: 055
     Dates: start: 2011, end: 20120412
  36. ANECTINE [Concomitant]
     Active Substance: SUCCINYLCHOLINE CHLORIDE
     Indication: ANAESTHETIC PREMEDICATION
     Route: 042
     Dates: start: 20120212, end: 20120212
  37. SALBUTAMOL [Concomitant]
     Active Substance: ALBUTEROL
     Dosage: 180MG CUMULATIVE DOSE
     Route: 055
     Dates: start: 20120212, end: 20120220
  38. LEVOFLOXACIN [Concomitant]
     Active Substance: LEVOFLOXACIN
     Indication: PNEUMONIA
     Route: 042
     Dates: start: 20120212, end: 20120213
  39. VOLUVEN [Concomitant]
     Active Substance: HYDROXYETHYL STARCH 130/0.4
     Indication: FLUID REPLACEMENT
     Route: 042
     Dates: start: 20120212, end: 20120212
  40. METHYLPREDNISOLONE [Concomitant]
     Active Substance: METHYLPREDNISOLONE
     Indication: ANTIINFLAMMATORY THERAPY
     Dosage: 40MG PER DAY
     Route: 042
     Dates: start: 20120215, end: 20120217
  41. LORAZEPAM. [Concomitant]
     Active Substance: LORAZEPAM
     Indication: ANXIETY
     Dosage: 1MG PER DAY
     Route: 048
     Dates: start: 20120217, end: 20120309

REACTIONS (1)
  - Acute pulmonary oedema [Recovered/Resolved]

NARRATIVE: CASE EVENT DATE: 20120308
